FAERS Safety Report 17263203 (Version 1)
Quarter: 2020Q1

REPORT INFORMATION
  Report Type: Spontaneous
  Country: US (occurrence: US)
  Receive Date: 20200111
  Receipt Date: 20200111
  Transmission Date: 20200409
  Serious: Yes (Other)
  Sender: FDA-Public Use
  Company Number: None

PATIENT
  Age: 35 Year
  Sex: Male
  Weight: 81 kg

DRUGS (1)
  1. ISOPROPYL RUBBING ALCOHOL 50% [Suspect]
     Active Substance: ISOPROPYL ALCOHOL
     Indication: PERSONAL HYGIENE
     Route: 061
     Dates: start: 20191226, end: 20200111

REACTIONS (4)
  - Product quality issue [None]
  - Product odour abnormal [None]
  - Skin exfoliation [None]
  - Dry skin [None]

NARRATIVE: CASE EVENT DATE: 20200105
